FAERS Safety Report 7897042-0 (Version None)
Quarter: 2011Q4

REPORT INFORMATION
  Report Type: 
  Country: None (occurrence: None)
  Receive Date: 20111107
  Receipt Date: 20111031
  Transmission Date: 20120403
  Serious: Yes (Other)
  Sender: FDA-Public Use
  Company Number: JP-JNJFOC-20111010332

PATIENT
  Age: 76 Year
  Sex: Female

DRUGS (6)
  1. TRAMADOL HYDROCHLORIDE/ACETAMINOPHEN [Suspect]
     Indication: PAIN
     Dosage: 1 DF 3 PER DAY
     Route: 048
     Dates: start: 20110826
  2. EDIROL [Concomitant]
     Route: 048
  3. GALANTAMINE HYDROBROMIDE [Concomitant]
     Route: 048
  4. RISEDRONATE SODIUM [Concomitant]
     Route: 048
  5. JUVELA N [Concomitant]
     Route: 048
  6. CEROCRAL [Concomitant]
     Route: 048

REACTIONS (3)
  - FALL [None]
  - DEMENTIA ALZHEIMER'S TYPE [None]
  - HEPATIC FUNCTION ABNORMAL [None]
